FAERS Safety Report 9254223 (Version 1)
Quarter: 2013Q2

REPORT INFORMATION
  Report Type: Spontaneous
  Country: DE (occurrence: DE)
  Receive Date: 20130425
  Receipt Date: 20130425
  Transmission Date: 20140414
  Serious: Yes (Life-Threatening, Hospitalization, Other)
  Sender: FDA-Public Use
  Company Number: PHHY2013DE040432

PATIENT
  Age: 58 Year
  Sex: Male

DRUGS (11)
  1. LEPONEX [Suspect]
     Dosage: 275 MG, QD
     Route: 048
     Dates: end: 20130116
  2. LEPONEX [Interacting]
     Dosage: 300 MG, QD
     Route: 048
     Dates: start: 20130117, end: 20130123
  3. ASS [Concomitant]
     Indication: PAIN
     Dosage: 100 MG, QD
     Route: 048
     Dates: end: 20130123
  4. DYSURGAL [Concomitant]
     Dosage: 1 MG, QD
     Route: 048
     Dates: end: 20130123
  5. TOREM [Concomitant]
     Dosage: 10 MG, QD
     Route: 048
     Dates: start: 20130122, end: 20130123
  6. ORFIRIL [Concomitant]
     Dosage: 1800 MG, QD
     Route: 048
     Dates: end: 20130123
  7. DELIX [Concomitant]
     Dosage: 5 MG, QD
     Route: 048
     Dates: end: 20130123
  8. SIMVASTATIN [Concomitant]
     Dosage: 40 MG, QD
     Route: 048
     Dates: end: 20130123
  9. BIFITERAL [Concomitant]
     Dosage: 10000 MG, QD
     Route: 048
     Dates: end: 20130123
  10. NACL [Concomitant]
     Dosage: 2000 ML, QD
     Route: 042
     Dates: end: 20130123
  11. SPASMEX [Concomitant]
     Dosage: 30 MG, QD
     Route: 048
     Dates: end: 20130123

REACTIONS (2)
  - Drug interaction [Recovered/Resolved]
  - Poisoning [Recovered/Resolved]
